FAERS Safety Report 9678289 (Version 1)
Quarter: 2013Q4

REPORT INFORMATION
  Report Type: Spontaneous
  Country: GB (occurrence: GB)
  Receive Date: 20131108
  Receipt Date: 20131108
  Transmission Date: 20140711
  Serious: Yes (Hospitalization)
  Sender: FDA-Public Use
  Company Number: GB-TEVA-442379ISR

PATIENT
  Age: 30 Year
  Sex: Male

DRUGS (4)
  1. ETOPOSIDE [Suspect]
     Indication: GERM CELL CANCER
     Dosage: CUMULATIVE DOSE 385MG
     Route: 065
     Dates: start: 20050131, end: 20050419
  2. PACLITAXEL [Suspect]
     Indication: GERM CELL CANCER
     Dosage: CUMULATIVE DOSE 348MG
     Route: 042
     Dates: start: 20050131, end: 20050221
  3. BLEOMYCIN [Suspect]
     Indication: GERM CELL CANCER
     Dosage: CUMULATIVE DOSE 360MG
     Route: 065
     Dates: start: 20050131, end: 20050430
  4. CISPLATIN [Suspect]
     Indication: GERM CELL CANCER
     Dosage: CUMULATIVE DOSE 765MG
     Route: 065
     Dates: start: 20050131, end: 20050419

REACTIONS (9)
  - Neutropenic sepsis [Recovered/Resolved]
  - Neutropenic sepsis [Recovering/Resolving]
  - Vena cava thrombosis [Recovered/Resolved]
  - Stomatitis [Recovering/Resolving]
  - Malaise [Recovering/Resolving]
  - Lower respiratory tract infection [Recovered/Resolved]
  - Vomiting [Not Recovered/Not Resolved]
  - Nausea [Not Recovered/Not Resolved]
  - Feeling abnormal [Recovered/Resolved]
